FAERS Safety Report 20566444 (Version 1)
Quarter: 2022Q1

REPORT INFORMATION
  Report Type: Spontaneous
  Country: FR (occurrence: FR)
  Receive Date: 20220308
  Receipt Date: 20220308
  Transmission Date: 20220423
  Serious: Yes (Congenital Anomaly, Other)
  Sender: FDA-Public Use
  Company Number: FR-SA-2022SA020329

PATIENT
  Age: 1 Month
  Sex: Male

DRUGS (1)
  1. VALPROIC ACID [Suspect]
     Active Substance: VALPROIC ACID
     Indication: Product used for unknown indication
     Dosage: UNK

REACTIONS (22)
  - Talipes [Unknown]
  - Bronchiolitis [Unknown]
  - Pharyngitis [Unknown]
  - Ear infection [Unknown]
  - Dysphemia [Unknown]
  - Affective disorder [Unknown]
  - Oropharyngeal pain [Unknown]
  - Tympanic membrane disorder [Unknown]
  - Nasopharyngitis [Unknown]
  - Disturbance in social behaviour [Unknown]
  - Impaired reasoning [Unknown]
  - Rhinitis [Unknown]
  - Conjunctivitis [Unknown]
  - Upper-airway cough syndrome [Unknown]
  - Otitis media acute [Unknown]
  - Learning disorder [Unknown]
  - Otitis media [Unknown]
  - Cognitive disorder [Unknown]
  - Aggression [Unknown]
  - Memory impairment [Unknown]
  - Visual impairment [Unknown]
  - Behaviour disorder [Unknown]
